FAERS Safety Report 10311284 (Version 3)
Quarter: 2015Q1

REPORT INFORMATION
  Report Type: Spontaneous
  Country: US (occurrence: US)
  Receive Date: 20140717
  Receipt Date: 20150326
  Transmission Date: 20150720
  Serious: Yes (Hospitalization)
  Sender: FDA-Public Use
  Company Number: US-BAYER-2014-107330

PATIENT
  Age: 46 Year
  Sex: Female
  Weight: 54.42 kg

DRUGS (2)
  1. LEXAPRO [Concomitant]
     Active Substance: ESCITALOPRAM OXALATE
     Indication: DEPRESSION
     Dosage: UNK
     Dates: start: 2002
  2. MIRENA [Suspect]
     Active Substance: LEVONORGESTREL
     Dosage: 20 MCG/24HR, CONT
     Route: 015
     Dates: start: 20090309, end: 20120622

REACTIONS (7)
  - Embedded device [None]
  - Injury [None]
  - Procedural pain [Not Recovered/Not Resolved]
  - Post procedural discomfort [Not Recovered/Not Resolved]
  - Medical device pain [None]
  - Abdominal pain lower [None]
  - Device difficult to use [None]

NARRATIVE: CASE EVENT DATE: 201205
